FAERS Safety Report 5509825-2 (Version None)
Quarter: 2007Q4

REPORT INFORMATION
  Report Type: 
  Country: None (occurrence: None)
  Receive Date: 20071108
  Receipt Date: 20071106
  Transmission Date: 20080405
  Serious: Yes (Life-Threatening, Hospitalization, Other)
  Sender: FDA-Public Use
  Company Number: HQWYE305525SEP07

PATIENT
  Sex: Female
  Weight: 56 kg

DRUGS (8)
  1. RAPAMUNE [Suspect]
     Indication: PROPHYLAXIS AGAINST TRANSPLANT REJECTION
     Route: 048
     Dates: start: 20070303, end: 20070925
  2. MEDROL [Concomitant]
     Route: 048
  3. CRESTOR [Concomitant]
     Route: 065
  4. PERINDOPRIL ERBUMINE [Concomitant]
     Route: 065
  5. CACIT [Concomitant]
     Dosage: 1 PER DAY
     Route: 065
  6. ZANTAC [Concomitant]
     Route: 065
  7. CELLCEPT [Concomitant]
     Route: 048
     Dates: end: 20070928
  8. METOPROLOL TARTRATE [Concomitant]
     Route: 065

REACTIONS (3)
  - GRAND MAL CONVULSION [None]
  - PNEUMONIA [None]
  - RESPIRATORY FAILURE [None]
